FAERS Safety Report 6077368-6 (Version None)
Quarter: 2009Q1

REPORT INFORMATION
  Report Type: 
  Country: None (occurrence: None)
  Receive Date: 20090121
  Receipt Date: 20080208
  Transmission Date: 20090719
  Serious: Yes (Other)
  Sender: FDA-Public Use
  Company Number: HQWYE926121APR06

PATIENT
  Age: 66 Year
  Sex: Female

DRUGS (11)
  1. PREMPRO [Suspect]
     Indication: HORMONE REPLACEMENT THERAPY
  2. COMBIPATCH [Suspect]
  3. ESTRADERM [Suspect]
  4. ESTRATEST [Suspect]
  5. NORETHINDRONE ACETATE [Suspect]
  6. OGEN [Suspect]
  7. ORAGEST (MEDROXYPROGESTERONE ACETATE, ) [Suspect]
  8. PREMARIN [Suspect]
  9. PREMARIN [Suspect]
  10. PROVERA [Suspect]
  11. VIVELLE [Suspect]

REACTIONS (1)
  - BREAST CANCER [None]
